FAERS Safety Report 7605050-X (Version None)
Quarter: 2011Q3

REPORT INFORMATION
  Report Type: 
  Country: None (occurrence: None)
  Receive Date: 20110713
  Receipt Date: 20081001
  Transmission Date: 20111222
  Serious: Yes (Other)
  Sender: FDA-Public Use
  Company Number: US-BAYER-2010-002001

PATIENT
  Age: 6 Day
  Sex: Male
  Weight: 4 kg

DRUGS (21)
  1. HEPARIN [Concomitant]
     Dosage: UNK
     Route: 042
     Dates: start: 20021202
  2. TRASYLOL [Suspect]
     Indication: ATRIAL SEPTAL DEFECT REPAIR
     Dosage: 200 ML, LOADING DOSE
     Route: 042
     Dates: start: 20021205, end: 20021205
  3. ATROPINE [Concomitant]
     Dosage: UNK
     Route: 042
     Dates: start: 20021204
  4. MILRINONE [Concomitant]
     Dosage: UNK
     Route: 042
     Dates: start: 20021202
  5. TRASYLOL [Suspect]
     Indication: ARTERIAL SWITCH OPERATION
     Dosage: 21 ML, PRIME
     Route: 042
     Dates: start: 20021205, end: 20021205
  6. SOLU-MEDROL [Concomitant]
     Dosage: UNK
     Route: 042
     Dates: start: 20021205, end: 20021205
  7. RED BLOOD CELLS [Concomitant]
     Dosage: 1 U, ONCE
     Route: 042
  8. HEPARIN [Concomitant]
     Dosage: 1.20 ML
     Route: 042
     Dates: start: 20021205, end: 20021208
  9. DOPAMINE HCL [Concomitant]
     Dosage: UNK
     Route: 042
     Dates: start: 20021205, end: 20021207
  10. PROSTIN 15M [Concomitant]
     Dosage: UNK
     Route: 042
     Dates: start: 20021204
  11. MANNITOL [Concomitant]
     Dosage: UNK
     Route: 042
     Dates: start: 20021205, end: 20021205
  12. ALPROSTADIL [Concomitant]
     Dosage: UNK
     Route: 042
     Dates: start: 20021202
  13. AMPICILLIN SODIUM [Concomitant]
     Dosage: UNK
     Route: 042
     Dates: start: 20021202
  14. LASIX [Concomitant]
     Dosage: UNK
     Route: 042
     Dates: start: 20021202
  15. MILRINONE [Concomitant]
     Dosage: UNK
     Route: 042
     Dates: start: 20021205, end: 20021208
  16. PROTAMINE SULFATE [Concomitant]
     Dosage: UNK
     Route: 042
     Dates: start: 20021205, end: 20021205
  17. CRYOPRECIPITATES [Concomitant]
     Route: 042
  18. GENTAMYCIN SULFATE [Concomitant]
     Dosage: UNK
     Route: 042
     Dates: start: 20021202
  19. PLATELETS [Concomitant]
     Route: 042
  20. CONCENTRATED TYLENOL INFANT DROPS [Concomitant]
     Dosage: UNK
     Dates: start: 20021202
  21. DILANTIN [Concomitant]
     Dosage: UNK
     Route: 042
     Dates: start: 20021205, end: 20021205

REACTIONS (6)
  - DEVELOPMENTAL DELAY [None]
  - INJURY [None]
  - EMOTIONAL DISTRESS [None]
  - ANXIETY [None]
  - CEREBROVASCULAR ACCIDENT [None]
  - PETIT MAL EPILEPSY [None]
